FAERS Safety Report 7439690-8 (Version None)
Quarter: 2011Q2

REPORT INFORMATION
  Report Type: 
  Country: None (occurrence: None)
  Receive Date: 20110427
  Receipt Date: 20110414
  Transmission Date: 20111010
  Serious: Yes (Hospitalization)
  Sender: FDA-Public Use
  Company Number: PHHY2011FR32095

PATIENT
  Sex: Female

DRUGS (2)
  1. TEGRETOL [Suspect]
     Indication: DEPRESSION
     Dosage: 100 MG, QD
     Dates: start: 20101101, end: 20110302
  2. ESCITALOPRAM [Suspect]
     Indication: DEPRESSION
     Dosage: 10 MG, QD
     Route: 048
     Dates: start: 20101101

REACTIONS (12)
  - PERIORBITAL HAEMATOMA [None]
  - DIZZINESS [None]
  - BRADYCARDIA [None]
  - DYSSTASIA [None]
  - FALL [None]
  - NAUSEA [None]
  - CLONUS [None]
  - DIPLOPIA [None]
  - MYDRIASIS [None]
  - ANTICONVULSANT DRUG LEVEL ABOVE THERAPEUTIC [None]
  - HEADACHE [None]
  - MOTOR DYSFUNCTION [None]
